FAERS Safety Report 7629390-3 (Version None)
Quarter: 2011Q3

REPORT INFORMATION
  Report Type: 
  Country: None (occurrence: None)
  Receive Date: 20110722
  Receipt Date: 20110712
  Transmission Date: 20111222
  Serious: Yes (Hospitalization)
  Sender: FDA-Public Use
  Company Number: CA-JNJFOC-20110706345

PATIENT
  Sex: Male
  Weight: 49.3 kg

DRUGS (2)
  1. FERROUS SULFATE TAB [Concomitant]
  2. REMICADE [Suspect]
     Indication: CROHN'S DISEASE
     Route: 042
     Dates: start: 20070101

REACTIONS (3)
  - WEIGHT DECREASED [None]
  - CROHN'S DISEASE [None]
  - HAEMOGLOBIN DECREASED [None]
